FAERS Safety Report 7619830-8 (Version None)
Quarter: 2011Q3

REPORT INFORMATION
  Report Type: 
  Country: None (occurrence: None)
  Receive Date: 20110719
  Receipt Date: 20110708
  Transmission Date: 20111222
  Serious: Yes (Other)
  Sender: FDA-Public Use
  Company Number: FR-NOVOPROD-331629

PATIENT
  Age: 72 Year
  Sex: Female

DRUGS (5)
  1. METFORMIN HCL [Concomitant]
  2. RENITEC                            /00574902/ [Concomitant]
     Dosage: 5 MG, QD
  3. VICTOZA [Suspect]
     Indication: TYPE 2 DIABETES MELLITUS
     Dosage: 1.8 MG, QD
     Route: 058
  4. GLYBURIDE [Concomitant]
     Dosage: 1.25 MG, QD
  5. PRAVASTATIN SODIUM [Concomitant]

REACTIONS (2)
  - GOITRE [None]
  - CONDITION AGGRAVATED [None]
